FAERS Safety Report 5896201-6 (Version None)
Quarter: 2008Q3

REPORT INFORMATION
  Report Type: 
  Country: None (occurrence: None)
  Receive Date: 20080924
  Receipt Date: 20080508
  Transmission Date: 20090109
  Serious: Yes (Hospitalization)
  Sender: FDA-Public Use
  Company Number: US-ASTRAZENECA-2007UW03850

PATIENT
  Age: 254 Month
  Sex: Male
  Weight: 99.8 kg

DRUGS (5)
  1. SEROQUEL [Suspect]
     Indication: DEPRESSION
     Route: 048
     Dates: start: 19991122, end: 20000701
  2. SLIM FAST [Concomitant]
  3. RILICORE [Concomitant]
  4. INVEGA [Concomitant]
  5. RISPERDAL [Concomitant]
     Dates: start: 19980101

REACTIONS (3)
  - DEPRESSION [None]
  - DIABETES MELLITUS [None]
  - DRUG INEFFECTIVE [None]
